FAERS Safety Report 4595260-0 (Version None)
Quarter: 2005Q1

REPORT INFORMATION
  Report Type: 
  Country: None (occurrence: None)
  Receive Date: 20050225
  Receipt Date: 20041210
  Transmission Date: 20050727
  Serious: Yes (Other)
  Sender: FDA-Public Use
  Company Number: 2004113977

PATIENT
  Sex: Male

DRUGS (3)
  1. CELEBREX [Suspect]
     Indication: ARTHRITIS
  2. ESOMEPRAZOLE (ESOMEPRAZOLE) [Concomitant]
  3. MISOPROSTOL [Concomitant]

REACTIONS (4)
  - ARTHRALGIA [None]
  - CORONARY ARTERY OCCLUSION [None]
  - DRUG INEFFECTIVE [None]
  - NAUSEA [None]
